FAERS Safety Report 8055161-2 (Version None)
Quarter: 2012Q1

REPORT INFORMATION
  Report Type: 
  Country: None (occurrence: None)
  Receive Date: 20120119
  Receipt Date: 20120110
  Transmission Date: 20120608
  Serious: Yes (Disabling, Other)
  Sender: FDA-Public Use
  Company Number: DE-BRISTOL-MYERS SQUIBB COMPANY-16336513

PATIENT
  Age: 66 Year
  Sex: Female

DRUGS (2)
  1. MADOPAR [Concomitant]
     Dates: start: 20120101
  2. SPRYCEL [Suspect]
     Indication: CHRONIC MYELOID LEUKAEMIA
     Route: 048
     Dates: start: 20110101

REACTIONS (2)
  - PARKINSON'S DISEASE [None]
  - TREMOR [None]
